FAERS Safety Report 24438266 (Version 1)
Quarter: 2024Q4

REPORT INFORMATION
  Report Type: Report from Study
  Country: US (occurrence: US)
  Receive Date: 20241015
  Receipt Date: 20241015
  Transmission Date: 20250115
  Serious: Yes (Other)
  Sender: ABBVIE
  Company Number: US-ABBVIE-5958747

PATIENT
  Sex: Female

DRUGS (1)
  1. SKYRIZI [Suspect]
     Active Substance: RISANKIZUMAB-RZAA
     Indication: Psoriatic arthropathy
     Route: 058
     Dates: start: 20230724

REACTIONS (5)
  - Hip fracture [Recovering/Resolving]
  - Psoriasis [Recovering/Resolving]
  - Fall [Recovering/Resolving]
  - Device dislocation [Recovered/Resolved]
  - Medical device pain [Recovered/Resolved]

NARRATIVE: CASE EVENT DATE: 20240101
